FAERS Safety Report 4963013-7 (Version None)
Quarter: 2006Q2

REPORT INFORMATION
  Report Type: 
  Country: None (occurrence: None)
  Receive Date: 20060405
  Receipt Date: 20060324
  Transmission Date: 20061013
  Serious: Yes (Disabling)
  Sender: FDA-Public Use
  Company Number: CH-JNJFOC-20060306352

PATIENT
  Age: 35 Year
  Sex: Male

DRUGS (2)
  1. HALDOL [Suspect]
     Route: 048
  2. HALDOL [Suspect]
     Indication: OBSESSIVE-COMPULSIVE DISORDER
     Route: 048

REACTIONS (5)
  - ACCIDENTAL OVERDOSE [None]
  - CIRCUMSTANCE OR INFORMATION CAPABLE OF LEADING TO MEDICATION ERROR [None]
  - DRUG LEVEL INCREASED [None]
  - MEDICATION ERROR [None]
  - SEDATION [None]
